FAERS Safety Report 9312291 (Version 3)
Quarter: 2013Q2

REPORT INFORMATION
  Report Type: Spontaneous
  Country: BR (occurrence: BR)
  Receive Date: 20130528
  Receipt Date: 20130614
  Transmission Date: 20140414
  Serious: Yes (Hospitalization)
  Sender: FDA-Public Use
  Company Number: BR-BRISTOL-MYERS SQUIBB COMPANY-18925362

PATIENT
  Age: 85 Year
  Sex: Female

DRUGS (20)
  1. COUMADIN TABS 1 MG [Suspect]
     Indication: PULMONARY THROMBOSIS
     Dosage: EXP DT:30NOV13, 30JUN13, 31JAN14
     Route: 048
     Dates: start: 20120922, end: 20121006
  2. ROSUVASTATIN [Interacting]
  3. OMEPRAZOLE [Interacting]
  4. CARBAMAZEPINE [Interacting]
  5. NEXIUM [Interacting]
  6. ATORVASTATIN [Interacting]
  7. AMIODARONE [Interacting]
     Route: 048
  8. LUFTAL [Concomitant]
  9. ENALAPRIL [Concomitant]
     Route: 048
  10. GABAPENTIN [Concomitant]
  11. TYLEX [Concomitant]
  12. AMPLICTIL [Concomitant]
  13. CLEXANE [Concomitant]
     Route: 058
  14. CRESTOR [Concomitant]
     Route: 048
  15. BROMOPRIDE [Concomitant]
     Route: 048
  16. FUROSEMIDE [Concomitant]
     Route: 048
  17. TYLEX [Concomitant]
     Route: 048
  18. RIVOTRIL [Concomitant]
     Route: 048
  19. PANTOPRAZOLE [Concomitant]
     Route: 048
  20. TEGRETOL [Concomitant]
     Route: 048

REACTIONS (2)
  - Therapeutic product ineffective [Recovered/Resolved]
  - Drug interaction [Unknown]
